FAERS Safety Report 17555986 (Version 1)
Quarter: 2020Q1

REPORT INFORMATION
  Report Type: Spontaneous
  Country: FR (occurrence: FR)
  Receive Date: 20200318
  Receipt Date: 20200318
  Transmission Date: 20200409
  Serious: Yes (Other)
  Sender: FDA-Public Use
  Company Number: FR-SA-2020SA068404

PATIENT
  Age: 75 Year
  Sex: Female

DRUGS (7)
  1. KETOTIFEN FUMARATE. [Suspect]
     Active Substance: KETOTIFEN FUMARATE
     Indication: PRODUCT USED FOR UNKNOWN INDICATION
     Dosage: 1 DROP, BID (IN MORNING AND EVENING FOR 10 DAYS)
     Route: 065
  2. AZYTER [Suspect]
     Active Substance: AZITHROMYCIN ANHYDROUS
     Indication: HYPERSENSITIVITY
     Dosage: UNK (IN BOTH EYES)
     Route: 065
     Dates: start: 202001, end: 2020
  3. HEXAMIDINE ISETIONATE [Suspect]
     Active Substance: HEXAMIDINE DIISETHIONATE
     Dosage: 1 DROP, QD (MIDDAY IN EACH EYE)
     Route: 047
     Dates: start: 20200122, end: 20200122
  4. HEXAMIDINE ISETIONATE [Suspect]
     Active Substance: HEXAMIDINE DIISETHIONATE
     Indication: PRODUCT USED FOR UNKNOWN INDICATION
     Dosage: 1 DROP, TID (MORNING, MIDDAY AND EVENING IN EACH EYE)
     Route: 047
     Dates: start: 20200121, end: 20200121
  5. KETOTIFEN FUMARATE. [Suspect]
     Active Substance: KETOTIFEN FUMARATE
     Indication: HYPERSENSITIVITY
     Dosage: UNK
     Route: 065
     Dates: start: 202001, end: 20200201
  6. XYZALL [Suspect]
     Active Substance: LEVOCETIRIZINE DIHYDROCHLORIDE
     Indication: HYPERSENSITIVITY
     Dosage: UNK
     Route: 065
     Dates: start: 202001, end: 20200201
  7. LEVOFREE [Suspect]
     Active Substance: LEVOCABASTINE HYDROCHLORIDE
     Indication: HYPERSENSITIVITY
     Dosage: 1 DF (10 DAYS)
     Route: 047
     Dates: start: 202001, end: 20200201

REACTIONS (5)
  - Visual impairment [Not Recovered/Not Resolved]
  - Hypersensitivity [Not Recovered/Not Resolved]
  - Drug ineffective [Unknown]
  - Eye disorder [Unknown]
  - Infection [Not Recovered/Not Resolved]

NARRATIVE: CASE EVENT DATE: 202001
